FAERS Safety Report 18406413 (Version 1)
Quarter: 2020Q4

REPORT INFORMATION
  Report Type: Spontaneous
  Country: US (occurrence: US)
  Receive Date: 20201020
  Receipt Date: 20201020
  Transmission Date: 20210114
  Serious: No
  Sender: FDA-Public Use
  Company Number: US-ELI_LILLY_AND_COMPANY-US202006003042

PATIENT

DRUGS (1)
  1. EMGALITY [Suspect]
     Active Substance: GALCANEZUMAB-GNLM
     Indication: MIGRAINE
     Dosage: 1 DOSAGE FORM, MONTHLY (1/M)
     Route: 065

REACTIONS (7)
  - Diplopia [Unknown]
  - Asthenia [Unknown]
  - Therapeutic response shortened [Unknown]
  - Nausea [Unknown]
  - Headache [Unknown]
  - Vertigo [Unknown]
  - Fatigue [Unknown]
